FAERS Safety Report 17753765 (Version 1)
Quarter: 2020Q2

REPORT INFORMATION
  Report Type: Spontaneous
  Country: US (occurrence: US)
  Receive Date: 20200506
  Receipt Date: 20200506
  Transmission Date: 20200714
  Serious: No
  Sender: FDA-Public Use
  Company Number: US-ROCHE-2417351

PATIENT
  Sex: Female

DRUGS (13)
  1. SERTRALINE HYDROCHLORIDE. [Concomitant]
     Active Substance: SERTRALINE HYDROCHLORIDE
  2. SPIRONOLACTONE. [Concomitant]
     Active Substance: SPIRONOLACTONE
  3. ESBRIET [Suspect]
     Active Substance: PIRFENIDONE
     Indication: IDIOPATHIC PULMONARY FIBROSIS
     Dosage: 1 WEEK WITH MEALS
     Route: 065
  4. ATENOLOL. [Concomitant]
     Active Substance: ATENOLOL
  5. TRAZODONE HYDROCHLORIDE. [Concomitant]
     Active Substance: TRAZODONE HYDROCHLORIDE
  6. MAGNESIUM [Concomitant]
     Active Substance: MAGNESIUM
  7. POTASSIUM [Concomitant]
     Active Substance: POTASSIUM
  8. BIOTIN [Concomitant]
     Active Substance: BIOTIN
  9. MELATONIN [Concomitant]
     Active Substance: MELATONIN
  10. ESBRIET [Suspect]
     Active Substance: PIRFENIDONE
     Dosage: 1 WEEK WITH MEALS
     Route: 065
  11. ESBRIET [Suspect]
     Active Substance: PIRFENIDONE
     Dosage: WITH MEALS
     Route: 065
  12. BENZONATATE. [Concomitant]
     Active Substance: BENZONATATE
  13. HYDROCHLOROTHIAZIDE. [Concomitant]
     Active Substance: HYDROCHLOROTHIAZIDE

REACTIONS (1)
  - Diarrhoea [Not Recovered/Not Resolved]
